FAERS Safety Report 8381383-7 (Version None)
Quarter: 2012Q2

REPORT INFORMATION
  Report Type: 
  Country: None (occurrence: None)
  Receive Date: 20120523
  Receipt Date: 20120521
  Transmission Date: 20120825
  Serious: Yes (Congenital Anomaly, Other)
  Sender: FDA-Public Use
  Company Number: PHHY2012GB043249

PATIENT

DRUGS (2)
  1. DIAZEPAM [Suspect]
     Route: 064
  2. METHADONE HCL [Suspect]
     Route: 064

REACTIONS (4)
  - OPTIC NERVE HYPOPLASIA [None]
  - FOETAL EXPOSURE DURING PREGNANCY [None]
  - CONGENITAL EYE DISORDER [None]
  - CONGENITAL NYSTAGMUS [None]
